FAERS Safety Report 9070216 (Version 3)
Quarter: 2013Q2

REPORT INFORMATION
  Report Type: Spontaneous
  Country: BE (occurrence: BE)
  Receive Date: 20130215
  Receipt Date: 20130412
  Transmission Date: 20140414
  Serious: Yes (Hospitalization)
  Sender: FDA-Public Use
  Company Number: BE-GENZYME-FABR-1003025

PATIENT
  Age: 56 Year
  Sex: Female
  Weight: 65 kg

DRUGS (6)
  1. FABRAZYME [Suspect]
     Indication: FABRY^S DISEASE
     Dosage: 1.07 MG/KG, Q2W
     Route: 042
     Dates: start: 20130121
  2. SIMVASTATIN [Concomitant]
     Indication: BLOOD CHOLESTEROL INCREASED
     Dosage: 20 MG, UNK
     Route: 065
  3. VALPROATE SODIUM [Concomitant]
     Indication: FACIAL SPASM
     Dosage: UNK
     Route: 065
  4. THYROXINE [Concomitant]
     Indication: HYPOTHYROIDISM
     Dosage: 50 UNK, UNK
     Route: 065
  5. RANITIDINE [Concomitant]
     Indication: GASTRITIS PROPHYLAXIS
     Dosage: 300 MG/DAY, UNK
     Route: 065
  6. NADOLOL [Concomitant]
     Indication: CARDIAC DISORDER
     Dosage: 160 MG/DAY, UNK
     Route: 065

REACTIONS (1)
  - Transient ischaemic attack [Recovered/Resolved]
